FAERS Safety Report 10016328 (Version 6)
Quarter: 2014Q2

REPORT INFORMATION
  Report Type: Report from Study
  Country: DE (occurrence: DE)
  Receive Date: 20140317
  Receipt Date: 20140521
  Transmission Date: 20141212
  Serious: Yes (Hospitalization, Other)
  Sender: FDA-Public Use
  Company Number: DE-009507513-1403DEU003400

PATIENT
  Age: 71 Year
  Sex: Male
  Weight: 93 kg

DRUGS (4)
  1. SIMVASTATIN [Suspect]
     Indication: ACUTE CORONARY SYNDROME
     Dosage: 40 MG, QD
     Route: 048
     Dates: start: 20090116
  2. BISOPROLOL [Concomitant]
     Dosage: DAILY DOSAGE:2.5 MG
     Route: 048
     Dates: start: 20090114
  3. ASPIRIN [Concomitant]
     Dosage: DAILY DOSAGE: 100 MG
     Route: 048
     Dates: start: 20090114
  4. LOSARTAN POTASSIUM [Concomitant]
     Dosage: DAILY DOSAGE: 25 MG
     Route: 048
     Dates: start: 20130128

REACTIONS (1)
  - Pancreatic carcinoma [Not Recovered/Not Resolved]
